FAERS Safety Report 4558024-X (Version None)
Quarter: 2005Q1

REPORT INFORMATION
  Report Type: 
  Country: None (occurrence: None)
  Receive Date: 20050121
  Receipt Date: 20040602
  Transmission Date: 20050727
  Serious: No
  Sender: FDA-Public Use
  Company Number: US-BRISTOL-MYERS SQUIBB COMPANY-12601779

PATIENT
  Age: 35 Year
  Sex: Female
  Weight: 128 kg

DRUGS (11)
  1. SERZONE [Suspect]
     Dosage: DOSAGE RANGED FROM 300 TO 1700 MG DAILY
     Route: 048
     Dates: start: 20000501, end: 20020201
  2. MAXALT [Concomitant]
  3. SYNTHROID [Concomitant]
  4. PREMARIN [Concomitant]
  5. FLAGYL [Concomitant]
  6. VALIUM [Concomitant]
  7. ASPIRIN [Concomitant]
  8. POTASSIUM SUPPLEMENT [Concomitant]
  9. LASIX [Concomitant]
  10. FOLIC ACID [Concomitant]
  11. XANAX [Concomitant]

REACTIONS (2)
  - ALANINE AMINOTRANSFERASE INCREASED [None]
  - ASPARTATE AMINOTRANSFERASE INCREASED [None]
